FAERS Safety Report 8210825-2 (Version None)
Quarter: 2012Q1

REPORT INFORMATION
  Report Type: 
  Country: None (occurrence: None)
  Receive Date: 20120315
  Receipt Date: 20120309
  Transmission Date: 20120608
  Serious: No
  Sender: FDA-Public Use
  Company Number: US-BIOGENIDEC-2012BI008784

PATIENT
  Sex: Female

DRUGS (2)
  1. ALBUTEROL [Concomitant]
     Indication: CHRONIC OBSTRUCTIVE PULMONARY DISEASE
  2. TYSABRI [Suspect]
     Indication: MULTIPLE SCLEROSIS
     Route: 042
     Dates: start: 20110719

REACTIONS (5)
  - SERUM FERRITIN DECREASED [None]
  - OEDEMA PERIPHERAL [None]
  - RASH PAPULAR [None]
  - FATIGUE [None]
  - PRURITUS [None]
